FAERS Safety Report 5567929-2 (Version None)
Quarter: 2007Q4

REPORT INFORMATION
  Report Type: 
  Country: None (occurrence: None)
  Receive Date: 20071218
  Receipt Date: 20071211
  Transmission Date: 20080405
  Serious: Yes (Hospitalization, Other)
  Sender: FDA-Public Use
  Company Number: 2007SP017678

PATIENT
  Age: 51 Year
  Sex: Female
  Weight: 79.8331 kg

DRUGS (9)
  1. PEG-INTRON [Suspect]
     Indication: HEPATITIS C
     Dosage: 120 MCG;QW;SC;SC
     Route: 058
     Dates: start: 20070814, end: 20070910
  2. PEG-INTRON [Suspect]
     Indication: HEPATITIS C
     Dosage: 120 MCG;QW;SC;SC
     Route: 058
     Dates: end: 20071101
  3. REBETOL [Suspect]
     Indication: HEPATITIS C
     Dosage: 1000 MG;PO
     Route: 048
     Dates: start: 20070814, end: 20070910
  4. REBETOL [Suspect]
     Indication: HEPATITIS C
     Dosage: 1000 MG;PO
     Route: 048
     Dates: end: 20071101
  5. ANITHYPERTENSIVES [Concomitant]
  6. LORCET [Concomitant]
  7. PROCARDIA [Concomitant]
  8. XANAX [Concomitant]
  9. ALBUTEROL [Concomitant]

REACTIONS (19)
  - ANOREXIA [None]
  - ANXIETY [None]
  - ASTHENIA [None]
  - BLISTER [None]
  - BLOOD POTASSIUM DECREASED [None]
  - CHEST PAIN [None]
  - CHRONIC OBSTRUCTIVE PULMONARY DISEASE [None]
  - CONDITION AGGRAVATED [None]
  - DEPRESSION [None]
  - DYSPNOEA [None]
  - FATIGUE [None]
  - GLOSSODYNIA [None]
  - INJECTION SITE REACTION [None]
  - MALAISE [None]
  - MUSCLE SPASMS [None]
  - NECK PAIN [None]
  - ORAL CANDIDIASIS [None]
  - OVERDOSE [None]
  - STAPHYLOCOCCAL INFECTION [None]
